FAERS Safety Report 8586647 (Version 6)
Quarter: 2012Q4

REPORT INFORMATION
  Report Type: 
  Country: US (occurrence: US)
  Receive Date: 20120530
  Receipt Date: 20120914
  Transmission Date: 20130627
  Serious: Yes (Hospitalization, Disabling, Other)
  Sender: FDA-Public Use
  Company Number: US-MSD-1205USA04390

PATIENT

DRUGS (5)
  1. FOSAMAX [Suspect]
     Indication: PROPHYLAXIS
     Dosage: 10 mg, UNK
     Route: 048
     Dates: start: 19960213, end: 200010
  2. FOSAMAX [Suspect]
     Indication: OSTEOPOROSIS
     Dosage: 70 mg, UNK
     Route: 048
     Dates: start: 200010, end: 200801
  3. FOSAMAX [Suspect]
     Indication: OSTEOPOROSIS
     Route: 048
     Dates: start: 200801, end: 20100604
  4. DYAZIDE [Concomitant]
     Route: 048
  5. ALENDRONATE SODIUM [Suspect]
     Dosage: UNK
     Dates: start: 20090630, end: 20100405

REACTIONS (39)
  - Femur fracture [Unknown]
  - Osteoporosis [Unknown]
  - Hyponatraemia [Unknown]
  - Deafness [Unknown]
  - Multiple fractures [Unknown]
  - Iron deficiency anaemia [Unknown]
  - Cerebral haemorrhage [Unknown]
  - Normochromic normocytic anaemia [Unknown]
  - Adverse drug reaction [Recovering/Resolving]
  - Femur fracture [Unknown]
  - Bone density decreased [Unknown]
  - Vitamin D deficiency [Unknown]
  - Dental caries [Unknown]
  - Blood cholesterol increased [Unknown]
  - Amaurosis fugax [Unknown]
  - Transient ischaemic attack [Unknown]
  - Acute sinusitis [Recovering/Resolving]
  - Blood glucose increased [Unknown]
  - Radiculopathy [Unknown]
  - Arthritis [Unknown]
  - Arthropathy [Not Recovered/Not Resolved]
  - Metabolic disorder [Unknown]
  - Coronary artery disease [Unknown]
  - Bronchitis [Unknown]
  - Tendonitis [Unknown]
  - Cataract [Unknown]
  - Hyperparathyroidism primary [Unknown]
  - Hyperparathyroidism secondary [Unknown]
  - Hypoparathyroidism [Unknown]
  - Hypercalcaemia [Unknown]
  - Food allergy [Unknown]
  - Nicotine dependence [Unknown]
  - Drug hypersensitivity [Unknown]
  - Abdominal discomfort [Unknown]
  - Hypersensitivity [Unknown]
  - Vomiting [Unknown]
  - Urticaria [Unknown]
  - Back pain [Unknown]
  - Hypocalcaemia [Unknown]
